FAERS Safety Report 25626620 (Version 1)
Quarter: 2025Q3

REPORT INFORMATION
  Report Type: Spontaneous
  Country: US (occurrence: US)
  Receive Date: 20250731
  Receipt Date: 20250731
  Transmission Date: 20251020
  Serious: Yes (Life-Threatening, Hospitalization)
  Sender: MYLAN
  Company Number: US-MYLANLABS-2025M1063388

PATIENT
  Age: 18 Year
  Sex: Female

DRUGS (20)
  1. FENTANYL [Suspect]
     Active Substance: FENTANYL
     Indication: Sedative therapy
  2. FENTANYL [Suspect]
     Active Substance: FENTANYL
     Route: 065
  3. FENTANYL [Suspect]
     Active Substance: FENTANYL
     Route: 065
  4. FENTANYL [Suspect]
     Active Substance: FENTANYL
  5. PROPOFOL [Suspect]
     Active Substance: PROPOFOL
     Indication: Sedative therapy
  6. PROPOFOL [Suspect]
     Active Substance: PROPOFOL
     Route: 065
  7. PROPOFOL [Suspect]
     Active Substance: PROPOFOL
     Route: 065
  8. PROPOFOL [Suspect]
     Active Substance: PROPOFOL
  9. ETOMIDATE [Concomitant]
     Active Substance: ETOMIDATE
     Indication: Sedative therapy
  10. ETOMIDATE [Concomitant]
     Active Substance: ETOMIDATE
     Route: 042
  11. ETOMIDATE [Concomitant]
     Active Substance: ETOMIDATE
     Route: 042
  12. ETOMIDATE [Concomitant]
     Active Substance: ETOMIDATE
  13. SUCCINYLCHOLINE [Concomitant]
     Active Substance: SUCCINYLCHOLINE
     Indication: Neuromuscular blocking therapy
  14. SUCCINYLCHOLINE [Concomitant]
     Active Substance: SUCCINYLCHOLINE
     Route: 042
  15. SUCCINYLCHOLINE [Concomitant]
     Active Substance: SUCCINYLCHOLINE
     Route: 042
  16. SUCCINYLCHOLINE [Concomitant]
     Active Substance: SUCCINYLCHOLINE
  17. KETAMINE [Concomitant]
     Active Substance: KETAMINE
     Indication: Sedative therapy
  18. KETAMINE [Concomitant]
     Active Substance: KETAMINE
     Route: 065
  19. KETAMINE [Concomitant]
     Active Substance: KETAMINE
     Route: 065
  20. KETAMINE [Concomitant]
     Active Substance: KETAMINE

REACTIONS (3)
  - Chest wall rigidity [Recovering/Resolving]
  - Hypoventilation [Recovering/Resolving]
  - Propofol infusion syndrome [Recovering/Resolving]
